FAERS Safety Report 7176352 (Version 3)
Quarter: 2013Q4

REPORT INFORMATION
  Report Type: Spontaneous
  Country: US (occurrence: US)
  Receive Date: 20091113
  Receipt Date: 20131212
  Transmission Date: 20140711
  Serious: Yes (Other)
  Sender: FDA-Public Use
  Company Number: US-BAYER-200938568NA

PATIENT
  Age: 25 Year
  Sex: Female
  Weight: 115.91 kg

DRUGS (12)
  1. YAZ [Suspect]
     Indication: PRODUCT USED FOR UNKNOWN INDICATION
  2. YASMIN [Suspect]
     Indication: PRODUCT USED FOR UNKNOWN INDICATION
  3. AZACTAM [Concomitant]
  4. LOVENOX [Concomitant]
  5. ACTOS [Concomitant]
  6. METFORMIN [Concomitant]
  7. MS CONTIN [Concomitant]
  8. TIZANIDINE [Concomitant]
  9. FLUTAMIDE [Concomitant]
  10. XANAX [Concomitant]
     Indication: ANXIETY
     Dosage: 2MG, AS NEEDED
     Route: 048
  11. MECLIZINE [Concomitant]
     Dosage: 62.5MG AS NEEDED
     Route: 048
  12. EPIPEN [Concomitant]
     Indication: ANAPHYLACTIC REACTION
     Dosage: 0.3MG, AS NEEDED

REACTIONS (3)
  - Cholecystitis chronic [None]
  - Pain [None]
  - Cholelithiasis [None]
